FAERS Safety Report 12652243 (Version 1)
Quarter: 2016Q3

REPORT INFORMATION
  Report Type: Report from Study
  Country: US (occurrence: US)
  Receive Date: 20160815
  Receipt Date: 20160815
  Transmission Date: 20161109
  Serious: Yes (Hospitalization)
  Sender: FDA-Public Use
  Company Number: US-BAYER-2016-136528

PATIENT
  Age: 56 Year
  Sex: Male

DRUGS (2)
  1. NEXAVAR [Suspect]
     Active Substance: SORAFENIB
     Indication: HEPATOCELLULAR CARCINOMA
     Dosage: 400 MG, QD
     Route: 048
     Dates: start: 20160711, end: 20160729
  2. NEXAVAR [Suspect]
     Active Substance: SORAFENIB
     Indication: HEPATOCELLULAR CARCINOMA
     Dosage: 400 MG, BID
     Route: 048
     Dates: start: 20160703, end: 20160710

REACTIONS (13)
  - Chills [None]
  - Gastric disorder [None]
  - Headache [None]
  - Fatigue [None]
  - Skin exfoliation [None]
  - Pruritus [None]
  - Gait disturbance [None]
  - Arthralgia [None]
  - Insomnia [None]
  - Diarrhoea [None]
  - Drug ineffective [None]
  - Chest pain [None]
  - Head discomfort [None]

NARRATIVE: CASE EVENT DATE: 201607
